FAERS Safety Report 23884907 (Version 3)
Quarter: 2024Q3

REPORT INFORMATION
  Report Type: Spontaneous
  Country: JP (occurrence: JP)
  Receive Date: 20240522
  Receipt Date: 20240722
  Transmission Date: 20241017
  Serious: Yes (Death)
  Sender: ROCHE
  Company Number: JP-CHUGAI-2024016467

PATIENT
  Age: 61 Year
  Sex: Female
  Weight: 77.4 kg

DRUGS (6)
  1. TECENTRIQ [Suspect]
     Active Substance: ATEZOLIZUMAB
     Indication: Non-small cell lung cancer
     Route: 065
     Dates: start: 20240416, end: 2024
  2. ISCOTIN [Suspect]
     Active Substance: ISONIAZID
     Indication: Tuberculosis
     Route: 048
     Dates: start: 20240314
  3. PREGABALIN [Concomitant]
     Active Substance: PREGABALIN
  4. LOXOPROFEN SODIUM [Concomitant]
     Active Substance: LOXOPROFEN SODIUM
  5. VONOPRAZAN FUMARATE [Concomitant]
     Active Substance: VONOPRAZAN FUMARATE
  6. VITAMIN B6 [Concomitant]
     Active Substance: PYRIDOXINE HYDROCHLORIDE

REACTIONS (4)
  - Platelet count decreased [Fatal]
  - Hepatic function abnormal [Fatal]
  - Pyrexia [Unknown]
  - Interstitial lung disease [Unknown]

NARRATIVE: CASE EVENT DATE: 20240424
